FAERS Safety Report 20362424 (Version 2)
Quarter: 2022Q1

REPORT INFORMATION
  Report Type: Report from Study
  Country: CN (occurrence: CN)
  Receive Date: 20220121
  Receipt Date: 20220125
  Transmission Date: 20220423
  Serious: Yes (Other)
  Sender: FDA-Public Use
  Company Number: CN-BoehringerIngelheim-2022-BI-106919

PATIENT
  Age: 79 Year
  Sex: Male
  Weight: 65 kg

DRUGS (4)
  1. TENECTEPLASE [Suspect]
     Active Substance: TENECTEPLASE
     Indication: Ischaemic stroke
     Dosage: SOLUTION FOR INJECTION/INFUSION
     Route: 042
     Dates: start: 20211230, end: 20211230
  2. BUTYLPHTHALIDE [Concomitant]
     Active Substance: BUTYLPHTHALIDE
     Indication: Ischaemic stroke
     Route: 042
     Dates: start: 20211230, end: 20220106
  3. METFORMIN HYDROCHLORIDE [Concomitant]
     Active Substance: METFORMIN HYDROCHLORIDE
     Indication: Type 2 diabetes mellitus
     Dates: start: 20211231
  4. ASPIRIN [Concomitant]
     Active Substance: ASPIRIN
     Indication: Cerebrovascular accident prophylaxis
     Dosage: ENTERIC COATED TABLET
     Route: 048
     Dates: start: 20211231

REACTIONS (1)
  - Myocardial injury [Recovered/Resolved]

NARRATIVE: CASE EVENT DATE: 20220101
